FAERS Safety Report 12855654 (Version 1)
Quarter: 2016Q4

REPORT INFORMATION
  Report Type: Spontaneous
  Country: US (occurrence: US)
  Receive Date: 20161017
  Receipt Date: 20161017
  Transmission Date: 20170207
  Serious: No
  Sender: FDA-Public Use
  Company Number: US-TAIHO ONCOLOGY INC-EU-2016-02048

PATIENT
  Age: 70 Year
  Sex: Female
  Weight: 102.15 kg

DRUGS (8)
  1. SERTRALINE [Concomitant]
     Active Substance: SERTRALINE HYDROCHLORIDE
     Dosage: NI
  2. HYDROCHLOROTHIAZIDE/TRIAMTERENE [Concomitant]
     Dosage: NI
  3. LEVEMIR [Concomitant]
     Active Substance: INSULIN DETEMIR
     Dosage: NI
  4. LONSURF [Suspect]
     Active Substance: TIPIRACIL HYDROCHLORIDE\TRIFLURIDINE
     Indication: COLON CANCER
     Route: 048
     Dates: start: 20160712
  5. PROCHLORPERAZINE. [Concomitant]
     Active Substance: PROCHLORPERAZINE
     Dosage: NI
  6. TRAMADOL. [Concomitant]
     Active Substance: TRAMADOL
     Dosage: NI
  7. DILTIAZEM. [Concomitant]
     Active Substance: DILTIAZEM
     Dosage: NI
  8. HUMALOG [Concomitant]
     Active Substance: INSULIN LISPRO
     Dosage: NI

REACTIONS (2)
  - Nausea [Recovered/Resolved]
  - Diarrhoea [Recovered/Resolved]

NARRATIVE: CASE EVENT DATE: 201607
